FAERS Safety Report 4978842-3 (Version None)
Quarter: 2006Q2

REPORT INFORMATION
  Report Type: 
  Country: None (occurrence: None)
  Receive Date: 20060417
  Receipt Date: 20060404
  Transmission Date: 20061013
  Serious: Yes (Death)
  Sender: FDA-Public Use
  Company Number: 2005EU001300

PATIENT
  Age: 34 Year
  Sex: Male

DRUGS (8)
  1. FK506            (TACROLIMUS) [Suspect]
     Indication: LIVER TRANSPLANT
     Dosage: 3 MG, BID, ORAL
     Route: 048
     Dates: start: 20050407, end: 20050523
  2. METHYLPREDNISOLONE [Suspect]
     Indication: LIVER TRANSPLANT
     Dosage: 50.00 MG, UID/QD,
     Dates: start: 20050407, end: 20050412
  3. PREDNISONE TAB [Suspect]
     Indication: LIVER TRANSPLANT
     Dosage: 11.00 MG, UID/QD,
     Dates: start: 20050413, end: 20050523
  4. ACYCLOVIR [Concomitant]
  5. VALACYCLOVIR [Concomitant]
  6. PIPERILLINE (PIPERACILLIN SODIUM) [Concomitant]
  7. MIDAZOLAM HCL [Concomitant]
  8. SUFENTANIL (SUFENTANIL) [Concomitant]

REACTIONS (5)
  - ABDOMINAL PAIN [None]
  - ABDOMINAL PAIN UPPER [None]
  - BACK PAIN [None]
  - CARDIAC ARREST [None]
  - RENAL FAILURE [None]
